FAERS Safety Report 11343301 (Version 2)
Quarter: 2015Q3

REPORT INFORMATION
  Report Type: Spontaneous
  Country: US (occurrence: US)
  Receive Date: 20150806
  Receipt Date: 20150914
  Transmission Date: 20151125
  Serious: Yes (Death)
  Sender: FDA-Public Use
  Company Number: US-ROCHE-1618309

PATIENT
  Sex: Female
  Weight: 60 kg

DRUGS (26)
  1. ESBRIET [Suspect]
     Active Substance: PIRFENIDONE
     Dosage: 3 CAPSULES THRICE DAILY WITH FOOD
     Route: 048
     Dates: end: 20150729
  2. DIGOXIN. [Concomitant]
     Active Substance: DIGOXIN
     Route: 048
     Dates: start: 20141028
  3. XARELTO [Concomitant]
     Active Substance: RIVAROXABAN
     Dosage: 1 TAB PO ONCE DAILY
     Route: 048
     Dates: start: 20140219
  4. ZOFRAN ODT [Concomitant]
     Active Substance: ONDANSETRON HYDROCHLORIDE
     Indication: NAUSEA
     Dosage: EVERY 6HRS PRN
     Route: 060
     Dates: start: 20150529
  5. ADVAIR HFA [Concomitant]
     Active Substance: FLUTICASONE PROPIONATE\SALMETEROL XINAFOATE
     Dosage: 115-21 MCG/ACT, 2 INHALATIONS, RINSE MOUTH AFTER USE
     Route: 065
     Dates: start: 20140910
  6. OXYGEN THERAPY [Concomitant]
     Active Substance: OXYGEN
     Dosage: 10L HIGH DOSE FOR HOME USE, 6L WITH EXERTION
     Route: 065
     Dates: start: 20150413
  7. MUCINEX DM [Concomitant]
     Active Substance: DEXTROMETHORPHAN HYDROBROMIDE\GUAIFENESIN
     Indication: COUGH
     Dosage: 30-600MG, TAKE 2 TABPO TWICE DAILY PRN
     Route: 048
     Dates: start: 20141201
  8. ASTEPRO [Concomitant]
     Active Substance: AZELASTINE HYDROCHLORIDE
     Dosage: 1-2 SPRAYS EACH NOSTRIL
     Route: 045
     Dates: start: 20141030
  9. METFORMIN HYDROCHLORIDE. [Concomitant]
     Active Substance: METFORMIN HYDROCHLORIDE
     Indication: DIABETES MELLITUS
     Dosage: 1 TAB PO DAILY WITH MEALS
     Route: 048
     Dates: start: 20150617
  10. PRILOSEC [Concomitant]
     Active Substance: OMEPRAZOLE MAGNESIUM
     Dosage: 1CAP WITH MEAL
     Route: 048
     Dates: start: 20150529
  11. WELCHOL [Concomitant]
     Active Substance: COLESEVELAM HYDROCHLORIDE
     Indication: BLOOD CHOLESTEROL
     Dosage: 3 PO BID WITH PLENTY OF FLUIDS
     Route: 048
     Dates: start: 20140908
  12. ADVAIR HFA [Concomitant]
     Active Substance: FLUTICASONE PROPIONATE\SALMETEROL XINAFOATE
     Indication: BRONCHOSPASM
     Route: 045
     Dates: start: 2012
  13. ACAPELLA CHEST THERAPY [Concomitant]
     Indication: CHRONIC OBSTRUCTIVE PULMONARY DISEASE
     Route: 065
     Dates: start: 20140109
  14. COLACE [Concomitant]
     Active Substance: DOCUSATE SODIUM
     Dosage: 1 CAPSULE
     Route: 048
     Dates: start: 20110511
  15. COLESTID [Concomitant]
     Active Substance: COLESTIPOL HYDROCHLORIDE
     Dosage: 2 QD*1-2WEEK THEN BID
     Route: 065
     Dates: start: 20150423
  16. LASIX [Concomitant]
     Active Substance: FUROSEMIDE
     Dosage: 1 EXTRA TAB FOR WEIGHT GAIN OR FLUID GAIN
     Route: 048
     Dates: start: 20140723
  17. PREDNISONE. [Concomitant]
     Active Substance: PREDNISONE
     Dosage: 2 TAB PO EVERY MORNING
     Route: 048
     Dates: start: 20150629
  18. PREDNISONE. [Concomitant]
     Active Substance: PREDNISONE
     Dosage: 2 PO DAILY FOR 7DAYS
     Route: 048
     Dates: start: 20150413
  19. ESBRIET [Suspect]
     Active Substance: PIRFENIDONE
     Indication: IDIOPATHIC PULMONARY FIBROSIS
     Dosage: 3 CAPSULES DAILY FOR ONE WEEK
     Route: 048
     Dates: start: 20141201
  20. AVELOX [Concomitant]
     Active Substance: MOXIFLOXACIN HYDROCHLORIDE
     Dosage: WITH FOOD FOR 10 DAYS
     Route: 048
     Dates: start: 20150527
  21. OXYGEN THERAPY [Concomitant]
     Active Substance: OXYGEN
     Route: 065
     Dates: start: 20111026
  22. ESBRIET [Suspect]
     Active Substance: PIRFENIDONE
     Dosage: 6 CAPSULES DAILY FOR ONE WEEK
     Route: 048
  23. ALLOPURINOL. [Concomitant]
     Active Substance: ALLOPURINOL
     Dosage: 1 TABLET
     Route: 048
     Dates: start: 20150617
  24. ATENOLOL. [Concomitant]
     Active Substance: ATENOLOL
     Indication: BLOOD PRESSURE MEASUREMENT
     Dosage: 1 TAB
     Route: 048
     Dates: start: 20150720
  25. COLESTIPOL HYDROCHLORIDE. [Concomitant]
     Active Substance: COLESTIPOL HYDROCHLORIDE
     Dosage: 1 PACKET MIXED IN APPLESAUCE AND TAKEN PO DAILY
     Route: 048
     Dates: start: 20150617
  26. PROAIR HFA [Concomitant]
     Active Substance: ALBUTEROL SULFATE
     Dosage: 108 (90 BASE) MCG/ACT, 1-2 INHALATIONS, Q 4-6 HOURS PRN SOB/COUGH/WHEEZE.?PROPHYLACTIC USE
     Route: 065
     Dates: start: 20130529

REACTIONS (2)
  - Cor pulmonale [Fatal]
  - Respiratory failure [Fatal]
